FAERS Safety Report 5013489-4 (Version None)
Quarter: 2006Q2

REPORT INFORMATION
  Report Type: 
  Country: None (occurrence: None)
  Receive Date: 20060525
  Receipt Date: 20060525
  Transmission Date: 20061013
  Serious: Yes (Hospitalization)
  Sender: FDA-Public Use
  Company Number: None

PATIENT
  Age: 64 Year
  Sex: Male

DRUGS (1)
  1. PREDNISONE TAB [Suspect]
     Indication: TRANSPLANT
     Dosage: DOSE TAPER  DAILY  PO
     Route: 048
     Dates: start: 20060119, end: 20060320

REACTIONS (1)
  - MYOPATHY [None]
